FAERS Safety Report 18273772 (Version 1)
Quarter: 2020Q3

REPORT INFORMATION
  Report Type: Spontaneous
  Country: ES (occurrence: ES)
  Receive Date: 20200916
  Receipt Date: 20200916
  Transmission Date: 20201103
  Serious: Yes (Hospitalization)
  Sender: FDA-Public Use
  Company Number: NVSC2020ES202058

PATIENT
  Age: 46 Year
  Sex: Male

DRUGS (4)
  1. FLUDARABINE [Suspect]
     Active Substance: FLUDARABINE PHOSPHATE
     Indication: NEOPLASM
     Dosage: 25 MG/M2
     Route: 042
     Dates: start: 20200304, end: 20200305
  2. PEMBROLIZUMAB. [Suspect]
     Active Substance: PEMBROLIZUMAB
     Indication: NEOPLASM
     Dosage: 200 MG
     Route: 042
     Dates: start: 20200226, end: 20200226
  3. PROLEUKIN [Suspect]
     Active Substance: ALDESLEUKIN
     Indication: NEOPLASM
     Dosage: 600000 IU/KG
     Route: 042
     Dates: start: 20200309, end: 20200310
  4. CYCLOPHOSPHAMIDE. [Suspect]
     Active Substance: CYCLOPHOSPHAMIDE
     Indication: NEOPLASM
     Dosage: 60 MG/KG
     Route: 042
     Dates: start: 20200302, end: 20200303

REACTIONS (1)
  - Cytokine release syndrome [Recovered/Resolved]

NARRATIVE: CASE EVENT DATE: 20200311
